FAERS Safety Report 14720231 (Version 1)
Quarter: 2018Q2

REPORT INFORMATION
  Report Type: Spontaneous
  Country: US (occurrence: US)
  Receive Date: 20180405
  Receipt Date: 20180405
  Transmission Date: 20180711
  Serious: Yes (Other)
  Sender: FDA-Public Use
  Company Number: US-CATALENT PHARMA SOLUTIONS-CAT-000065-2018

PATIENT
  Age: 27 Year
  Sex: Male

DRUGS (4)
  1. VALPROIC ACID. [Suspect]
     Active Substance: VALPROIC ACID
     Indication: PRODUCT USED FOR UNKNOWN INDICATION
     Dosage: UNK
     Route: 048
  2. ARIPIPRAZOLE. [Concomitant]
     Active Substance: ARIPIPRAZOLE
     Indication: PRODUCT USED FOR UNKNOWN INDICATION
     Dosage: UNK
     Route: 065
  3. BENZTROPINE. [Concomitant]
     Active Substance: BENZTROPINE
     Indication: PRODUCT USED FOR UNKNOWN INDICATION
     Dosage: UNK
     Route: 065
  4. HALOPERIDOL. [Concomitant]
     Active Substance: HALOPERIDOL
     Indication: PRODUCT USED FOR UNKNOWN INDICATION
     Dosage: UNK
     Route: 065

REACTIONS (13)
  - Blood bilirubin increased [Recovered/Resolved]
  - Ataxia [Unknown]
  - Hyperammonaemia [Recovered/Resolved]
  - Hyperammonaemic encephalopathy [Recovered/Resolved]
  - Drug-induced liver injury [Unknown]
  - Coagulopathy [Unknown]
  - Thrombocytopenia [Unknown]
  - Asterixis [Unknown]
  - Alanine aminotransferase increased [Recovering/Resolving]
  - Somnolence [Recovered/Resolved]
  - Hepatic encephalopathy [Unknown]
  - Aspartate aminotransferase increased [Recovering/Resolving]
  - Ocular icterus [Unknown]
